FAERS Safety Report 8212696-7 (Version None)
Quarter: 2012Q1

REPORT INFORMATION
  Report Type: 
  Country: None (occurrence: None)
  Receive Date: 20120315
  Receipt Date: 20120313
  Transmission Date: 20120608
  Serious: Yes (Other)
  Sender: FDA-Public Use
  Company Number: US-AMGEN-USASP2012016365

PATIENT
  Age: 29 Year
  Sex: Female
  Weight: 79.8 kg

DRUGS (9)
  1. NPLATE [Suspect]
     Indication: AUTOIMMUNE THROMBOCYTOPENIA
     Dosage: 80 UNK, UNK
     Dates: start: 20120308
  2. ZOFRAN [Concomitant]
     Dosage: UNK UNK, PRN
  3. SIMETHICONE [Concomitant]
     Dosage: UNK
  4. PERCOCET [Concomitant]
     Dosage: UNK UNK, PRN
  5. PROMETHAZINE [Concomitant]
     Dosage: UNK UNK, PRN
  6. HYDROMORPHONE HCL [Concomitant]
  7. VICODIN [Concomitant]
  8. ACETAMINOPHEN [Concomitant]
  9. BENADRYL [Concomitant]
     Indication: HYPERSENSITIVITY

REACTIONS (1)
  - PLATELET COUNT DECREASED [None]
